FAERS Safety Report 12497389 (Version 1)
Quarter: 2016Q2

REPORT INFORMATION
  Report Type: Spontaneous
  Country: FR (occurrence: FR)
  Receive Date: 20160624
  Receipt Date: 20160624
  Transmission Date: 20160815
  Serious: Yes (Other)
  Sender: FDA-Public Use
  Company Number: FR-MYLANLABS-2016M1023990

PATIENT

DRUGS (1)
  1. TRAMADOL. [Suspect]
     Active Substance: TRAMADOL
     Indication: HEADACHE
     Dosage: UPTO SIX 150MG TABLETS A DAY
     Route: 048

REACTIONS (2)
  - Intentional product use issue [Recovered/Resolved]
  - Drug dependence [Recovered/Resolved]
